FAERS Safety Report 6700019-1 (Version None)
Quarter: 2010Q2

REPORT INFORMATION
  Report Type: 
  Country: None (occurrence: None)
  Receive Date: 20100427
  Receipt Date: 20100427
  Transmission Date: 20101027
  Serious: Yes (Hospitalization)
  Sender: FDA-Public Use
  Company Number: None

PATIENT
  Sex: Female
  Weight: 63.6 kg

DRUGS (3)
  1. DAUNORUBICIN HCL [Suspect]
     Dosage: 456 MG
  2. ETOPOSIDE [Suspect]
  3. CYTARABINE [Suspect]
     Dosage: 1183 MG
     Dates: end: 20081028

REACTIONS (2)
  - CARDIAC FAILURE CONGESTIVE [None]
  - DRUG TOXICITY [None]
